FAERS Safety Report 9539146 (Version 1)
Quarter: 2013Q3

REPORT INFORMATION
  Report Type: Spontaneous
  Country: US (occurrence: None)
  Receive Date: 20130917
  Receipt Date: 20130917
  Transmission Date: 20140515
  Serious: Yes (Hospitalization)
  Sender: FDA-Public Use
  Company Number: SYM-2013-10617

PATIENT
  Age: 56 Year
  Sex: Male

DRUGS (1)
  1. XENAZINE [Suspect]
     Indication: CHOREA
     Route: 048

REACTIONS (3)
  - Pneumonia [None]
  - Gait disturbance [None]
  - Hallucination [None]
